FAERS Safety Report 7893185-6 (Version None)
Quarter: 2011Q4

REPORT INFORMATION
  Report Type: 
  Country: None (occurrence: None)
  Receive Date: 20111104
  Receipt Date: 20111025
  Transmission Date: 20120403
  Serious: Yes (Hospitalization, Other)
  Sender: FDA-Public Use
  Company Number: PHHY2011ES79909

PATIENT
  Age: 57 Year
  Sex: Male

DRUGS (2)
  1. CARBAMAZEPINE [Suspect]
     Dosage: 4 G, UNK
  2. CARBAMAZEPINE [Suspect]
     Indication: EPILEPSY
     Dosage: UNK UKN, UNK

REACTIONS (18)
  - ALCOHOL POISONING [None]
  - BLOOD ETHANOL INCREASED [None]
  - BODY TEMPERATURE DECREASED [None]
  - BLOOD UREA INCREASED [None]
  - PCO2 INCREASED [None]
  - BLOOD PH DECREASED [None]
  - HAEMOTHORAX [None]
  - HAEMODYNAMIC INSTABILITY [None]
  - METABOLIC ACIDOSIS [None]
  - COMA [None]
  - LOSS OF CONSCIOUSNESS [None]
  - BLOOD PRESSURE DECREASED [None]
  - OVERDOSE [None]
  - PUPILS UNEQUAL [None]
  - BLOOD CREATININE INCREASED [None]
  - ASPIRATION BRONCHIAL [None]
  - PANCREATITIS ACUTE [None]
  - BLOOD GLUCOSE INCREASED [None]
